FAERS Safety Report 6711255-2 (Version None)
Quarter: 2010Q2

REPORT INFORMATION
  Report Type: 
  Country: None (occurrence: None)
  Receive Date: 20100505
  Receipt Date: 20100413
  Transmission Date: 20101027
  Serious: Yes (Life-Threatening, Hospitalization)
  Sender: FDA-Public Use
  Company Number: JP-BAYER-201018980GPV

PATIENT
  Age: 60 Year
  Sex: Male

DRUGS (5)
  1. ADALAT [Suspect]
     Indication: HYPERTENSION
  2. EPERISONE HYDROCHLORIDE [Interacting]
     Indication: DRUG USE FOR UNKNOWN INDICATION
  3. EPERISONE HYDROCHLORIDE [Interacting]
  4. TRIAZOLAM [Interacting]
     Indication: DRUG USE FOR UNKNOWN INDICATION
  5. TRIAZOLAM [Interacting]

REACTIONS (4)
  - ELECTROCARDIOGRAM QT PROLONGED [None]
  - HYPOTENSION [None]
  - SINUS BRADYCARDIA [None]
  - TORSADE DE POINTES [None]
